FAERS Safety Report 7682401-1 (Version None)
Quarter: 2011Q3

REPORT INFORMATION
  Report Type: 
  Country: None (occurrence: None)
  Receive Date: 20110815
  Receipt Date: 20110810
  Transmission Date: 20111222
  Serious: Yes (Hospitalization)
  Sender: FDA-Public Use
  Company Number: FR-BRISTOL-MYERS SQUIBB COMPANY-15502735

PATIENT
  Age: 19 Year
  Sex: Female
  Weight: 52 kg

DRUGS (6)
  1. ACETAMINOPHEN [Concomitant]
     Indication: PAIN
     Dates: start: 20101213, end: 20101222
  2. KETOPROFEN [Concomitant]
     Indication: PAIN
     Dosage: 1DF=2TAB
     Route: 048
     Dates: start: 20101028, end: 20101213
  3. TRAMADOL HCL [Concomitant]
     Indication: PAIN
     Dates: start: 20101213, end: 20101222
  4. PREDNISOLONE [Concomitant]
  5. IPILIMUMAB [Suspect]
     Indication: MALIGNANT MELANOMA
     Dosage: NO OF INF:3,BATCH NO:0D57266; 0C62102.0J.
     Route: 042
     Dates: start: 20101028, end: 20101213
  6. IMOVANE [Concomitant]
     Indication: ANXIETY
     Dosage: 1DF=1TAB
     Route: 048
     Dates: start: 20101028, end: 20101213

REACTIONS (2)
  - CYTOLYTIC HEPATITIS [None]
  - DIARRHOEA [None]
